FAERS Safety Report 14707884 (Version 2)
Quarter: 2018Q4

REPORT INFORMATION
  Report Type: Spontaneous
  Country: US (occurrence: US)
  Receive Date: 20180403
  Receipt Date: 20181009
  Transmission Date: 20190204
  Serious: No
  Sender: FDA-Public Use
  Company Number: US-PFIZER INC-2018130339

PATIENT
  Age: 68 Year
  Sex: Female

DRUGS (22)
  1. SPIRONOLACTONE. [Suspect]
     Active Substance: SPIRONOLACTONE
     Dosage: UNK
  2. HYDROCODONE [Suspect]
     Active Substance: HYDROCODONE
     Dosage: UNK
  3. BENAZEPRIL [Suspect]
     Active Substance: BENAZEPRIL HYDROCHLORIDE
     Dosage: UNK
  4. LOTENSIN [Suspect]
     Active Substance: BENAZEPRIL HYDROCHLORIDE
     Dosage: UNK
  5. PRAVASTATIN. [Suspect]
     Active Substance: PRAVASTATIN
     Dosage: UNK
  6. BUTALBITAL/APAP [Suspect]
     Active Substance: ACETAMINOPHEN\BUTALBITAL
     Dosage: UNK
  7. ATORVASTATIN CALCIUM. [Suspect]
     Active Substance: ATORVASTATIN CALCIUM
     Dosage: UNK
  8. NIFEDIPINE. [Suspect]
     Active Substance: NIFEDIPINE
     Dosage: UNK
  9. HYDROCHLOROTHIAZIDE/SPIRONOLACTONE [Suspect]
     Active Substance: HYDROCHLOROTHIAZIDE\SPIRONOLACTONE
     Dosage: UNK
  10. PYRIDIUM [Suspect]
     Active Substance: PHENAZOPYRIDINE
     Dosage: UNK
  11. HYDROMORPHONE HYDROCHLORIDE. [Suspect]
     Active Substance: HYDROMORPHONE HYDROCHLORIDE
     Dosage: UNK
  12. ACETAMINOPHEN W/BUTALBITAL/CAFFEINE/CODEINE P [Suspect]
     Active Substance: ACETAMINOPHEN\BUTALBITAL\CAFFEINE\CODEINE PHOSPHATE
     Dosage: UNK
  13. DIAZEPAM. [Suspect]
     Active Substance: DIAZEPAM
     Dosage: UNK
  14. ZOLOFT [Suspect]
     Active Substance: SERTRALINE HYDROCHLORIDE
     Dosage: UNK
  15. VALIUM [Suspect]
     Active Substance: DIAZEPAM
     Dosage: UNK
  16. DARVOCET [Suspect]
     Active Substance: ACETAMINOPHEN\PROPOXYPHENE HYDROCHLORIDE
     Dosage: UNK
  17. PROPANOLOL HCL [Suspect]
     Active Substance: PROPRANOLOL HYDROCHLORIDE
     Dosage: UNK
  18. TRAMADOL. [Suspect]
     Active Substance: TRAMADOL
     Dosage: UNK
  19. PHENAZOPYRIDINE. [Suspect]
     Active Substance: PHENAZOPYRIDINE
     Dosage: UNK
  20. HYDROCHLOROTHIAZIDE. [Suspect]
     Active Substance: HYDROCHLOROTHIAZIDE
     Dosage: UNK
  21. OXYMORPHONE [Suspect]
     Active Substance: OXYMORPHONE
     Dosage: UNK
  22. NABUMETONE. [Suspect]
     Active Substance: NABUMETONE
     Dosage: UNK

REACTIONS (1)
  - Drug hypersensitivity [Unknown]
